FAERS Safety Report 7686783-6 (Version None)
Quarter: 2011Q3

REPORT INFORMATION
  Report Type: 
  Country: None (occurrence: None)
  Receive Date: 20110816
  Receipt Date: 20110805
  Transmission Date: 20111222
  Serious: Yes (Hospitalization)
  Sender: FDA-Public Use
  Company Number: PHHY2011FR72452

PATIENT
  Age: 28 Year
  Sex: Female

DRUGS (1)
  1. LAMOTRIGINE [Suspect]
     Indication: EPILEPSY

REACTIONS (10)
  - DRUG RASH WITH EOSINOPHILIA AND SYSTEMIC SYMPTOMS [None]
  - RASH MACULO-PAPULAR [None]
  - HAEMATURIA [None]
  - LUNG INFILTRATION [None]
  - THROMBOCYTOPENIA [None]
  - FACE OEDEMA [None]
  - PROTEINURIA [None]
  - PYREXIA [None]
  - ANAEMIA [None]
  - LYMPHADENOPATHY [None]
